FAERS Safety Report 8024191-9 (Version None)
Quarter: 2012Q1

REPORT INFORMATION
  Report Type: 
  Country: None (occurrence: None)
  Receive Date: 20120105
  Receipt Date: 20111228
  Transmission Date: 20120608
  Serious: Yes (Hospitalization, Other)
  Sender: FDA-Public Use
  Company Number: JP-PFIZER INC-2011307820

PATIENT
  Age: 57 Year
  Sex: Male

DRUGS (5)
  1. ZOSYN [Suspect]
     Indication: URINARY TRACT INFECTION
     Dosage: 18 G/DAY
  2. AMPICILLIN SODIUM AND SULBACTAM SODIUM [Suspect]
     Indication: PNEUMONIA ASPIRATION
     Dosage: 6 G/DAY
     Route: 041
     Dates: start: 20110419, end: 20110427
  3. AMPICILLIN SODIUM AND SULBACTAM SODIUM [Suspect]
     Indication: URINARY TRACT INFECTION
  4. TOBRAMYCIN [Suspect]
     Indication: PNEUMONIA ASPIRATION
     Dosage: 270 MG/DAY
     Route: 041
     Dates: start: 20110428
  5. ZOSYN [Suspect]
     Indication: PNEUMONIA ASPIRATION
     Dosage: 18 G, UNK
     Route: 041
     Dates: start: 20110428

REACTIONS (2)
  - VITAMIN K DEFICIENCY [None]
  - DUODENAL ULCER HAEMORRHAGE [None]
